FAERS Safety Report 20631119 (Version 1)
Quarter: 2022Q1

REPORT INFORMATION
  Report Type: Spontaneous
  Country: CN (occurrence: None)
  Receive Date: 20220324
  Receipt Date: 20220324
  Transmission Date: 20220424
  Serious: Yes (Hospitalization)
  Sender: FDA-Public Use
  Company Number: 2022A119160

PATIENT
  Age: 25659 Day
  Sex: Male

DRUGS (3)
  1. METFORMIN HYDROCHLORIDE\SAXAGLIPTIN [Suspect]
     Active Substance: METFORMIN HYDROCHLORIDE\SAXAGLIPTIN
     Indication: Diabetes mellitus
     Route: 048
     Dates: start: 20220228, end: 20220303
  2. INSULIN GLARGINE [Concomitant]
     Active Substance: INSULIN GLARGINE
     Indication: Diabetes mellitus
     Dosage: 22.000000 UNITS, ONCE EVERY DAY
     Route: 058
     Dates: start: 20220228, end: 20220309
  3. ACARBOSE [Concomitant]
     Active Substance: ACARBOSE
     Indication: Diabetes mellitus
     Route: 048
     Dates: start: 20220228, end: 20220303

REACTIONS (3)
  - Generalised oedema [Recovering/Resolving]
  - Dizziness [Unknown]
  - Fatigue [Unknown]

NARRATIVE: CASE EVENT DATE: 20220303
